FAERS Safety Report 13442806 (Version 1)
Quarter: 2017Q2

REPORT INFORMATION
  Report Type: Spontaneous
  Country: US (occurrence: US)
  Receive Date: 20170414
  Receipt Date: 20170414
  Transmission Date: 20170830
  Serious: No
  Sender: FDA-Public Use
  Company Number: US-PFIZER INC-2017154514

PATIENT
  Sex: Female

DRUGS (1)
  1. XELJANZ XR [Suspect]
     Active Substance: TOFACITINIB CITRATE
     Dosage: 11 MG, UNK

REACTIONS (5)
  - Blood immunoglobulin G increased [Unknown]
  - Blood creatine phosphokinase increased [Unknown]
  - Increased tendency to bruise [Unknown]
  - Arthralgia [Unknown]
  - Pain in extremity [Unknown]
